FAERS Safety Report 8281744-0 (Version None)
Quarter: 2012Q2

REPORT INFORMATION
  Report Type: 
  Country: None (occurrence: None)
  Receive Date: 20120413
  Receipt Date: 20120404
  Transmission Date: 20120825
  Serious: Yes (Other)
  Sender: FDA-Public Use
  Company Number: ES-JNJFOC-20120401471

PATIENT
  Sex: Male

DRUGS (3)
  1. PALEXIA RETARD [Suspect]
     Route: 048
     Dates: start: 20110908, end: 20110915
  2. PALEXIA RETARD [Suspect]
     Indication: BACK PAIN
     Route: 048
     Dates: end: 20111019
  3. NABUMETONE [Concomitant]
     Indication: PRODUCT USED FOR UNKNOWN INDICATION
     Route: 065

REACTIONS (3)
  - PRESYNCOPE [None]
  - DRUG HYPERSENSITIVITY [None]
  - URTICARIA [None]
